FAERS Safety Report 6029408-8 (Version None)
Quarter: 2009Q1

REPORT INFORMATION
  Report Type: 
  Country: None (occurrence: None)
  Receive Date: 20090105
  Receipt Date: 20081223
  Transmission Date: 20090719
  Serious: Yes (Hospitalization)
  Sender: FDA-Public Use
  Company Number: 1000001676

PATIENT
  Age: 52 Year
  Sex: Male

DRUGS (4)
  1. ESCITALOPRAM [Suspect]
     Dosage: 10 MG (10 MG), ORAL
     Route: 048
  2. UNSPECIFIED ANTIHYPERTENSIVA [Concomitant]
  3. UNSPECIFIED ANIEMETICS [Concomitant]
  4. MULTIVITAMINS AND MINERAL SUPPLEMENT [Concomitant]

REACTIONS (23)
  - CATATONIA [None]
  - CHEST DISCOMFORT [None]
  - CLONUS [None]
  - COGNITIVE DISORDER [None]
  - DEMYELINATION [None]
  - DROOLING [None]
  - DYSKINESIA [None]
  - DYSPHAGIA [None]
  - HYPERTENSION [None]
  - HYPERTONIA [None]
  - HYPOMANIA [None]
  - HYPONATRAEMIA [None]
  - HYPOPHAGIA [None]
  - MAJOR DEPRESSION [None]
  - MASKED FACIES [None]
  - MUSCLE RIGIDITY [None]
  - MUSCULOSKELETAL STIFFNESS [None]
  - MUTISM [None]
  - NASAL DISCOMFORT [None]
  - NO THERAPEUTIC RESPONSE [None]
  - REGURGITATION [None]
  - URINARY INCONTINENCE [None]
  - VOMITING PROJECTILE [None]
